FAERS Safety Report 10261896 (Version 1)
Quarter: 2014Q2

REPORT INFORMATION
  Report Type: Spontaneous
  Country: US (occurrence: US)
  Receive Date: 20140626
  Receipt Date: 20140626
  Transmission Date: 20141212
  Serious: Yes (Hospitalization)
  Sender: FDA-Public Use
  Company Number: US-CELGENEUS-163-21880-14063200

PATIENT
  Age: 55 Year
  Sex: Female

DRUGS (3)
  1. REVLIMID [Suspect]
     Indication: PLASMA CELL MYELOMA
     Dosage: 25 MILLIGRAM
     Route: 048
     Dates: start: 201211
  2. REVLIMID [Suspect]
     Dosage: 25 MILLIGRAM
     Route: 048
     Dates: start: 20140526
  3. RED BLOOD CELLS [Concomitant]
     Indication: FULL BLOOD COUNT DECREASED
     Route: 041
     Dates: start: 201406

REACTIONS (2)
  - Immunosuppression [Not Recovered/Not Resolved]
  - Full blood count decreased [Not Recovered/Not Resolved]
